FAERS Safety Report 18316503 (Version 1)
Quarter: 2020Q3

REPORT INFORMATION
  Report Type: Spontaneous
  Country: TH (occurrence: TH)
  Receive Date: 20200927
  Receipt Date: 20200927
  Transmission Date: 20201103
  Serious: Yes (Other)
  Sender: FDA-Public Use
  Company Number: TH-ROCHE-2684691

PATIENT
  Sex: Female

DRUGS (1)
  1. HERCEPTIN [Suspect]
     Active Substance: TRASTUZUMAB
     Indication: BREAST CANCER
     Dosage: 15 CYCLES IN THE ADJUVANT SETTING
     Route: 065

REACTIONS (3)
  - Congestive cardiomyopathy [Unknown]
  - Metastases to bone [Unknown]
  - Metastases to lymph nodes [Unknown]
